FAERS Safety Report 6490428-0 (Version None)
Quarter: 2009Q4

REPORT INFORMATION
  Report Type: 
  Country: None (occurrence: None)
  Receive Date: 20091210
  Receipt Date: 20091210
  Transmission Date: 20100525
  Serious: Yes (Hospitalization)
  Sender: FDA-Public Use
  Company Number: None

PATIENT
  Age: 61 Year
  Sex: Male
  Weight: 75.75 kg

DRUGS (3)
  1. DIVALPROEX SODIUM [Suspect]
     Indication: BIPOLAR DISORDER
     Dosage: 1500 MG AT BEDTIME PO
     Route: 048
     Dates: start: 20021125, end: 20091206
  2. DIVALPROEX SODIUM [Suspect]
     Indication: MANIA
     Dosage: 1500 MG AT BEDTIME PO
     Route: 048
     Dates: start: 20021125, end: 20091206
  3. DIVALPROEX SODIUM [Suspect]
     Indication: SCHIZOAFFECTIVE DISORDER
     Dosage: 1500 MG AT BEDTIME PO
     Route: 048
     Dates: start: 20021125, end: 20091206

REACTIONS (4)
  - AMMONIA INCREASED [None]
  - FATIGUE [None]
  - LETHARGY [None]
  - MENTAL STATUS CHANGES [None]
